FAERS Safety Report 8927366 (Version 2)
Quarter: 2012Q4

REPORT INFORMATION
  Report Type: Report from Study
  Country: NL (occurrence: NL)
  Receive Date: 20121127
  Receipt Date: 20121128
  Transmission Date: 20130627
  Serious: Yes (Death, Hospitalization)
  Sender: FDA-Public Use
  Company Number: NL-TEVA-372150USA

PATIENT
  Age: 69 Year
  Sex: Female
  Weight: 74 kg

DRUGS (4)
  1. TREANDA [Suspect]
     Route: 042
     Dates: start: 20120919
  2. LENALIDOMIDE [Suspect]
     Dates: start: 20120921
  3. RITUXIMAB [Suspect]
  4. CETIRIZINE [Concomitant]
     Dates: start: 20121002, end: 20121017

REACTIONS (3)
  - Myocardial infarction [Fatal]
  - Cardiac failure [Fatal]
  - Pneumonia [Recovered/Resolved]
